FAERS Safety Report 4344213-6 (Version None)
Quarter: 2004Q2

REPORT INFORMATION
  Report Type: 
  Country: None (occurrence: None)
  Receive Date: 20040419
  Receipt Date: 20040402
  Transmission Date: 20050107
  Serious: Yes (Death)
  Sender: FDA-Public Use
  Company Number: B0329003A

PATIENT
  Sex: 0

DRUGS (4)
  1. ALKERAN [Suspect]
     Indication: MULTIPLE MYELOMA
     Dosage: 6 MG/M2/ORAL
     Route: 048
  2. PREDNISOLONE [Suspect]
     Indication: MULTIPLE MYELOMA
     Dosage: 40 MG/M2/ ORAL
     Route: 048
  3. CYCLOPHOSPHAMIDE [Suspect]
     Indication: MULTIPLE MYELOMA
     Dosage: 350 MG/M2/ INTRAVENOUS INFUSION
     Route: 042
  4. VINCRISTINE SULFATE [Suspect]
     Indication: MULTIPLE MYELOMA
     Dosage: INTRAVENOUS
     Route: 042

REACTIONS (2)
  - ENCEPHALOPATHY [None]
  - HERPES ZOSTER [None]
